FAERS Safety Report 8321168-0 (Version None)
Quarter: 2012Q2

REPORT INFORMATION
  Report Type: 
  Country: None (occurrence: None)
  Receive Date: 20120430
  Receipt Date: 20120419
  Transmission Date: 20120825
  Serious: Yes (Other)
  Sender: FDA-Public Use
  Company Number: US-JNJFOC-20120409442

PATIENT
  Age: 61 Year
  Sex: Female

DRUGS (2)
  1. REMICADE [Suspect]
     Indication: CROHN'S DISEASE
     Route: 042
     Dates: end: 20120101
  2. AZATHIOPRINE [Concomitant]
     Indication: CROHN'S DISEASE
     Route: 065

REACTIONS (2)
  - HYPOTHYROIDISM [None]
  - BLOOD CREATINE INCREASED [None]
